FAERS Safety Report 12874223 (Version 1)
Quarter: 2016Q4

REPORT INFORMATION
  Report Type: Spontaneous
  Country: JP (occurrence: JP)
  Receive Date: 20161021
  Receipt Date: 20161021
  Transmission Date: 20170207
  Serious: Yes (Other)
  Sender: FDA-Public Use
  Company Number: PHJP2016JP029449

PATIENT
  Sex: Female

DRUGS (1)
  1. REVOLADE TAB [Suspect]
     Active Substance: ELTROMBOPAG
     Indication: PRODUCT USED FOR UNKNOWN INDICATION
     Dosage: UNK
     Route: 048
     Dates: start: 201507

REACTIONS (4)
  - Alopecia [Recovered/Resolved]
  - Oedema peripheral [Unknown]
  - Hepatic function abnormal [Unknown]
  - Lymphoma [Unknown]

NARRATIVE: CASE EVENT DATE: 201511
